FAERS Safety Report 5666628-6 (Version None)
Quarter: 2008Q1

REPORT INFORMATION
  Report Type: 
  Country: None (occurrence: None)
  Receive Date: 20080315
  Receipt Date: 20071219
  Transmission Date: 20080703
  Serious: No
  Sender: FDA-Public Use
  Company Number: US-ABBOTT-07P-163-0431171-00

PATIENT
  Sex: Male
  Weight: 74.91 kg

DRUGS (3)
  1. HUMIRA [Suspect]
     Indication: PSORIASIS
     Dosage: TOOK DOSE ONE WEEK TOO EARLY
     Route: 058
     Dates: start: 20071217, end: 20071217
  2. HUMIRA [Suspect]
     Route: 058
     Dates: start: 20070901, end: 20071216
  3. HUMIRA [Suspect]
     Route: 058

REACTIONS (1)
  - OVERDOSE [None]
